FAERS Safety Report 10816389 (Version 1)
Quarter: 2015Q1

REPORT INFORMATION
  Report Type: Spontaneous
  Country: CN (occurrence: CN)
  Receive Date: 20150218
  Receipt Date: 20150218
  Transmission Date: 20150721
  Serious: Yes (Hospitalization)
  Sender: FDA-Public Use
  Company Number: CN-BAYER-2015-023103

PATIENT
  Sex: Female

DRUGS (2)
  1. ULTRAVIST [Suspect]
     Active Substance: IOPROMIDE
     Indication: COMPUTERISED TOMOGRAM CORONARY ARTERY
     Dosage: 100 ML, ONCE
     Dates: start: 20150209, end: 20150209
  2. ULTRAVIST [Suspect]
     Active Substance: IOPROMIDE
     Indication: PALPITATIONS

REACTIONS (5)
  - Blood pressure decreased [Recovering/Resolving]
  - Cardiac arrest [Recovering/Resolving]
  - Blindness [Recovering/Resolving]
  - Swelling [Recovering/Resolving]
  - Deafness [Recovering/Resolving]

NARRATIVE: CASE EVENT DATE: 20150209
